FAERS Safety Report 6689337-3 (Version None)
Quarter: 2010Q2

REPORT INFORMATION
  Report Type: 
  Country: None (occurrence: None)
  Receive Date: 20100416
  Receipt Date: 20100406
  Transmission Date: 20101027
  Serious: Yes (Hospitalization)
  Sender: FDA-Public Use
  Company Number: 2010AL002018

PATIENT
  Age: 15 Year
  Sex: Female

DRUGS (5)
  1. FLUOXETINE [Suspect]
     Indication: ANOREXIA NERVOSA
     Dosage: 60 MG;QD
  2. RISPERDONE [Suspect]
     Indication: ANOREXIA NERVOSA
     Dosage: 0.75 MG;QD
  3. OLANZAPINE [Concomitant]
  4. CLONAZEPAM [Concomitant]
  5. QUETIAPINE [Concomitant]

REACTIONS (4)
  - ANXIETY [None]
  - CONDITION AGGRAVATED [None]
  - EATING DISORDER [None]
  - ELECTROCARDIOGRAM QT PROLONGED [None]
